FAERS Safety Report 16222490 (Version 1)
Quarter: 2019Q2

REPORT INFORMATION
  Report Type: Spontaneous
  Country: US (occurrence: US)
  Receive Date: 20190419
  Receipt Date: 20190419
  Transmission Date: 20190711
  Serious: Yes (Hospitalization)
  Sender: FDA-Public Use
  Company Number: None

PATIENT
  Age: 69 Year
  Sex: Female

DRUGS (21)
  1. TRAMADOL. [Concomitant]
     Active Substance: TRAMADOL
  2. WARFARIN [Concomitant]
     Active Substance: WARFARIN
  3. DOK [Concomitant]
     Active Substance: DOCUSATE SODIUM
  4. NETIORIK [Concomitant]
  5. ADVAIR HFA [Concomitant]
     Active Substance: FLUTICASONE PROPIONATE\SALMETEROL XINAFOATE
  6. DIGOX [Concomitant]
     Active Substance: DIGOXIN
  7. PROAIR HFA [Concomitant]
     Active Substance: ALBUTEROL SULFATE
  8. LANSOPRAZOLE. [Concomitant]
     Active Substance: LANSOPRAZOLE
  9. FUROSEMIDE. [Concomitant]
     Active Substance: FUROSEMIDE
  10. ALBUTEROL. [Concomitant]
     Active Substance: ALBUTEROL
  11. ATORVASTATIN [Concomitant]
     Active Substance: ATORVASTATIN
  12. SILDENAFIL. [Suspect]
     Active Substance: SILDENAFIL
     Indication: PULMONARY ARTERIAL HYPERTENSION
     Route: 048
     Dates: start: 20170304
  13. LYRACA [Concomitant]
  14. SPIRONOLACT [Concomitant]
     Active Substance: SPIRONOLACTONE
  15. SPIRIVA [Concomitant]
     Active Substance: TIOTROPIUM BROMIDE MONOHYDRATE
  16. POTASSIUM [Concomitant]
     Active Substance: POTASSIUM
  17. METOLAZONE. [Concomitant]
     Active Substance: METOLAZONE
  18. MIDODRINE [Concomitant]
     Active Substance: MIDODRINE
  19. POT CL [Concomitant]
  20. MAG OXIDE [Concomitant]
     Active Substance: MAGNESIUM OXIDE
  21. TORSEMIDE. [Concomitant]
     Active Substance: TORSEMIDE

REACTIONS (3)
  - Pulmonary hypertension [None]
  - Dyspnoea [None]
  - Therapy change [None]

NARRATIVE: CASE EVENT DATE: 20190315
